FAERS Safety Report 14235522 (Version 1)
Quarter: 2017Q4

REPORT INFORMATION
  Report Type: Spontaneous
  Country: FR (occurrence: FR)
  Receive Date: 20171129
  Receipt Date: 20171129
  Transmission Date: 20180321
  Serious: Yes (Other)
  Sender: FDA-Public Use
  Company Number: FR-VIIV HEALTHCARE LIMITED-FR2017GSK181539

PATIENT
  Age: 71 Year
  Sex: Male

DRUGS (9)
  1. LEVOTHYROXINE. [Interacting]
     Active Substance: LEVOTHYROXINE
     Dosage: 100 UNK, QD
     Dates: start: 201510
  2. ABACAVIR. [Concomitant]
     Active Substance: ABACAVIR
  3. TENOFOVIR [Concomitant]
     Active Substance: TENOFOVIR
  4. EMTRICITABINE [Concomitant]
     Active Substance: EMTRICITABINE
  5. LEVOTHYROXINE. [Interacting]
     Active Substance: LEVOTHYROXINE
     Indication: GOITRE
     Dosage: 165 UG, QD
     Dates: start: 2004
  6. ATAZANAVIR. [Concomitant]
     Active Substance: ATAZANAVIR SULFATE
  7. DOLUTEGRAVIR [Suspect]
     Active Substance: DOLUTEGRAVIR
     Indication: HIV INFECTION
  8. LAMIVUDINE. [Concomitant]
     Active Substance: LAMIVUDINE
  9. RITONAVIR. [Concomitant]
     Active Substance: RITONAVIR

REACTIONS (2)
  - Drug interaction [Unknown]
  - Hyperthyroidism [Recovered/Resolved]
